FAERS Safety Report 5913212-2 (Version None)
Quarter: 2008Q4

REPORT INFORMATION
  Report Type: 
  Country: None (occurrence: None)
  Receive Date: 20081006
  Receipt Date: 20080924
  Transmission Date: 20090506
  Serious: No
  Sender: FDA-Public Use
  Company Number: 08H-163-0314970-00

PATIENT
  Age: 2 Year
  Sex: Female
  Weight: 17 kg

DRUGS (7)
  1. PRECEDEX [Suspect]
     Indication: PERIOPERATIVE ANALGESIA
     Dosage: 2MCG/KG, BOLUS, INTRAVENOUS  ; 0.07MCG/KG/HR, CONTINUOUS, INTRAVENOUS
     Route: 042
     Dates: start: 20080916, end: 20080916
  2. SEVOFLURANE [Concomitant]
  3. ROCURONIUM BROMIDE [Concomitant]
  4. DECADRON [Concomitant]
  5. ONDANSETRON HCL [Concomitant]
  6. NEOSTIGMINE (NEOSTIGMINE) [Concomitant]
  7. GLYCOPYRROLATE [Concomitant]

REACTIONS (2)
  - POST PROCEDURAL COMPLICATION [None]
  - PULMONARY OEDEMA [None]
